FAERS Safety Report 8425746-X (Version None)
Quarter: 2012Q2

REPORT INFORMATION
  Report Type: 
  Country: None (occurrence: None)
  Receive Date: 20120531
  Receipt Date: 20120521
  Transmission Date: 20120825
  Serious: Yes (Hospitalization)
  Sender: FDA-Public Use
  Company Number: 2012SP024897

PATIENT
  Age: 29 Year
  Sex: Male

DRUGS (1)
  1. INTERFERON ALFA-2B RECOMBINANT (INTERFERON ALFA-2B) [Suspect]
     Indication: HEPATITIS B
     Dosage: TIW

REACTIONS (2)
  - AUTOIMMUNE THYROIDITIS [None]
  - TYPE 1 DIABETES MELLITUS [None]
